FAERS Safety Report 25670166 (Version 1)
Quarter: 2025Q3

REPORT INFORMATION
  Report Type: Spontaneous
  Country: US (occurrence: None)
  Receive Date: 20250811
  Receipt Date: 20250811
  Transmission Date: 20251021
  Serious: Yes (Life-Threatening)
  Sender: FDA-CTU
  Company Number: None

PATIENT
  Sex: Female

DRUGS (15)
  1. TERIPARATIDE [Suspect]
     Active Substance: TERIPARATIDE
     Indication: Senile osteoporosis
     Dosage: FREQUENCY : DAILY;?
     Route: 058
     Dates: start: 20240202
  2. VITAMIN D2 [Concomitant]
     Active Substance: ERGOCALCIFEROL
  3. NITROGLYCERIN TRANSDERMAL [Concomitant]
  4. DULOXETINE HYDROCHLORIDE [Concomitant]
     Active Substance: DULOXETINE HYDROCHLORIDE
  5. LEVOTHYROXINE SODIUM [Concomitant]
     Active Substance: LEVOTHYROXINE SODIUM
  6. ATORVASTATIN CALCIUM [Concomitant]
     Active Substance: ATORVASTATIN CALCIUM
  7. CLONAZEPAM [Concomitant]
     Active Substance: CLONAZEPAM
  8. MIRTAZAPINE [Concomitant]
     Active Substance: MIRTAZAPINE
  9. RANOLAZINE [Concomitant]
     Active Substance: RANOLAZINE
  10. NAPROXEN [Concomitant]
     Active Substance: NAPROXEN
  11. TIZANIDINE HYDROCHLORIDE [Concomitant]
     Active Substance: TIZANIDINE HYDROCHLORIDE
  12. ACETAMINOPHEN\HYDROCODONE [Concomitant]
     Active Substance: ACETAMINOPHEN\HYDROCODONE
  13. GABAPENTIN [Concomitant]
     Active Substance: GABAPENTIN
  14. AMLODIPINE BESYLATE [Concomitant]
     Active Substance: AMLODIPINE BESYLATE
  15. CLOPIDOGREL [Concomitant]
     Active Substance: CLOPIDOGREL BISULFATE

REACTIONS (1)
  - Cerebrovascular accident [None]
